FAERS Safety Report 23142009 (Version 1)
Quarter: 2023Q4

REPORT INFORMATION
  Report Type: Spontaneous
  Country: GB (occurrence: GB)
  Receive Date: 20231103
  Receipt Date: 20231103
  Transmission Date: 20240109
  Serious: Yes (Other)
  Sender: FDA-Public Use
  Company Number: None

PATIENT
  Age: 42 Year
  Sex: Female
  Weight: 50 kg

DRUGS (1)
  1. VERMOX [Suspect]
     Active Substance: MEBENDAZOLE
     Indication: Enterobiasis
     Dosage: 5ML X 2 2 WEEKS APART; ;
     Route: 065
     Dates: start: 20231014, end: 20231029

REACTIONS (1)
  - Haematochezia [Not Recovered/Not Resolved]

NARRATIVE: CASE EVENT DATE: 20231030
